FAERS Safety Report 12648220 (Version 2)
Quarter: 2016Q3

REPORT INFORMATION
  Report Type: Spontaneous
  Country: US (occurrence: US)
  Receive Date: 20160812
  Receipt Date: 20160901
  Transmission Date: 20161109
  Serious: Yes (Other)
  Sender: FDA-Public Use
  Company Number: US-BAYER-2016-154684

PATIENT
  Age: 60 Year
  Sex: Female
  Weight: 87.98 kg

DRUGS (6)
  1. GADAVIST [Suspect]
     Active Substance: GADOBUTROL
     Indication: NUCLEAR MAGNETIC RESONANCE IMAGING BRAIN
     Dosage: 9 ML, ONCE
     Route: 042
     Dates: start: 20160728, end: 20160728
  2. TOLTERODINE [Concomitant]
     Active Substance: TOLTERODINE
  3. PRAMIPEXOLE. [Concomitant]
     Active Substance: PRAMIPEXOLE
  4. MELOXICAM. [Concomitant]
     Active Substance: MELOXICAM
  5. GADAVIST [Suspect]
     Active Substance: GADOBUTROL
     Indication: VERTIGO
  6. LEVOTHYROXINE. [Concomitant]
     Active Substance: LEVOTHYROXINE

REACTIONS (10)
  - Pharyngeal oedema [Recovered/Resolved]
  - Pruritus [Recovering/Resolving]
  - Throat tightness [Recovering/Resolving]
  - Urticaria [Recovering/Resolving]
  - Lethargy [Recovering/Resolving]
  - Erythema [Recovered/Resolved]
  - Throat tightness [Recovered/Resolved]
  - Pruritus [Recovered/Resolved]
  - Urticaria [Recovered/Resolved]
  - Dizziness [Recovering/Resolving]

NARRATIVE: CASE EVENT DATE: 201607
